FAERS Safety Report 5167677-7 (Version None)
Quarter: 2006Q4

REPORT INFORMATION
  Report Type: 
  Country: None (occurrence: None)
  Receive Date: 20061201
  Receipt Date: 20061201
  Transmission Date: 20070319
  Serious: Yes (Other)
  Sender: FDA-Public Use
  Company Number: None

PATIENT
  Age: 71 Year
  Sex: Male
  Weight: 99.7913 kg

DRUGS (7)
  1. CLOPIDOGREL [Suspect]
     Indication: CEREBROVASCULAR ACCIDENT
     Dosage: 75 MG   DAILY  ORAL
     Route: 048
     Dates: start: 20061122, end: 20061124
  2. INDAPAMIDE [Concomitant]
  3. NORVASC [Concomitant]
  4. ARTHROTEC [Concomitant]
  5. MICROZIDE [Concomitant]
  6. GLIPIZIDE ER [Concomitant]
  7. AMBIEN [Concomitant]

REACTIONS (7)
  - AGITATION [None]
  - ARTHRALGIA [None]
  - DIZZINESS [None]
  - JOINT SWELLING [None]
  - MOOD ALTERED [None]
  - PALPITATIONS [None]
  - VISUAL ACUITY REDUCED [None]
